FAERS Safety Report 9699464 (Version 1)
Quarter: 2013Q4

REPORT INFORMATION
  Report Type: Spontaneous
  Country: US (occurrence: US)
  Receive Date: 20131120
  Receipt Date: 20131120
  Transmission Date: 20140711
  Serious: Yes (Other)
  Sender: FDA-Public Use
  Company Number: US-TEVA-370532USA

PATIENT
  Age: 28 Year
  Sex: Female
  Weight: 62.65 kg

DRUGS (2)
  1. PARAGARD 380A [Suspect]
     Indication: CONTRACEPTION
     Route: 015
     Dates: start: 20120815, end: 20120926
  2. PARAGARD 380A [Suspect]
     Route: 015
     Dates: start: 20121007

REACTIONS (3)
  - Uterine perforation [Recovered/Resolved]
  - Pelvic pain [Recovered/Resolved]
  - Urinary tract infection [Recovered/Resolved]
